FAERS Safety Report 6266230-1 (Version None)
Quarter: 2009Q3

REPORT INFORMATION
  Report Type: 
  Country: None (occurrence: None)
  Receive Date: 20090713
  Receipt Date: 20090630
  Transmission Date: 20100115
  Serious: Yes (Hospitalization, Other)
  Sender: FDA-Public Use
  Company Number: US-PFIZER INC-2008051007

PATIENT
  Sex: Female

DRUGS (6)
  1. LYRICA [Suspect]
     Dosage: 100 MG, 3X/DAY
     Route: 048
     Dates: end: 20080602
  2. LOPID [Suspect]
     Dosage: 600 MG, 2X/DAY
  3. ZOCOR [Suspect]
     Dosage: 80 MG, UNK
  4. COUMADIN [Concomitant]
  5. INSULIN [Concomitant]
  6. TRIGLYCERIDES [Concomitant]

REACTIONS (1)
  - RHABDOMYOLYSIS [None]
